FAERS Safety Report 7326427-6 (Version None)
Quarter: 2011Q1

REPORT INFORMATION
  Report Type: 
  Country: None (occurrence: None)
  Receive Date: 20110302
  Receipt Date: 20110217
  Transmission Date: 20110831
  Serious: Yes (Death)
  Sender: FDA-Public Use
  Company Number: AT-ELI_LILLY_AND_COMPANY-AT201102003521

PATIENT
  Age: 56 Year
  Sex: Female

DRUGS (7)
  1. XIGRIS [Suspect]
     Indication: SEPTIC SHOCK
     Dosage: 24MC/KG/H, UNK
     Route: 042
     Dates: start: 20110210, end: 20110211
  2. HYDROCORTISON [Concomitant]
     Dosage: 10MG/H
     Dates: start: 20110208, end: 20110211
  3. ANAEROBEX [Concomitant]
     Dosage: 500 MG, 3/D
  4. CILASTATIN W/IMIPENEM [Concomitant]
     Dosage: 1 G, 3/D
  5. PITRESSIN [Concomitant]
     Dosage: 0.03UNITS/KG/MIN
     Dates: start: 20110208, end: 20110211
  6. ZYVOX [Concomitant]
     Dosage: 600 MG, 2/D
     Dates: start: 20110208, end: 20110211
  7. ARTERENOL [Concomitant]

REACTIONS (1)
  - MULTI-ORGAN FAILURE [None]
